FAERS Safety Report 20162121 (Version 1)
Quarter: 2021Q4

REPORT INFORMATION
  Report Type: Spontaneous
  Country: US (occurrence: None)
  Receive Date: 20211208
  Receipt Date: 20211208
  Transmission Date: 20220304
  Serious: Yes (Hospitalization)
  Sender: FDA-Public Use
  Company Number: None

PATIENT
  Age: 71 Year
  Sex: Male

DRUGS (19)
  1. ARANESP [Suspect]
     Active Substance: DARBEPOETIN ALFA
     Indication: Chronic kidney disease
     Dosage: OTHER FREQUENCY : Q 14 DAYS ;?
     Route: 058
     Dates: start: 20191119
  2. AMLODIPINE [Concomitant]
     Active Substance: AMLODIPINE BESYLATE
  3. AMOXICILLIN\CLAVULANATE POTASSIUM [Concomitant]
     Active Substance: AMOXICILLIN\CLAVULANATE POTASSIUM
  4. B12 [Concomitant]
  5. BENZONATATE [Concomitant]
  6. BUT/APAP/CAF [Concomitant]
  7. CALCIUM CIT [Concomitant]
  8. CARVEDILOL [Concomitant]
     Active Substance: CARVEDILOL
  9. CITALOPRAM [Concomitant]
  10. CYANOCOBALAM [Concomitant]
  11. FOLIC ACID [Concomitant]
  12. GABAPENTIN [Concomitant]
  13. LEVOTHRYROXINE [Concomitant]
  14. LISINOPRIL [Concomitant]
     Active Substance: LISINOPRIL
  15. MONTELUKAST [Concomitant]
  16. PRAVASTATIN [Concomitant]
  17. PYRIDOSTIGM [Concomitant]
  18. SODIUM BICAR [Concomitant]
  19. TORESEMID VIT B12 [Concomitant]

REACTIONS (2)
  - Accident [None]
  - Therapy interrupted [None]

NARRATIVE: CASE EVENT DATE: 20211203
